FAERS Safety Report 21353416 (Version 1)
Quarter: 2022Q3

REPORT INFORMATION
  Report Type: Spontaneous
  Country: SE (occurrence: SE)
  Receive Date: 20220920
  Receipt Date: 20220920
  Transmission Date: 20221027
  Serious: Yes (Other)
  Sender: FDA-Public Use
  Company Number: None

PATIENT
  Age: 70 Year
  Sex: Male
  Weight: 87 kg

DRUGS (1)
  1. PREDNISOLONE [Suspect]
     Active Substance: PREDNISOLONE
     Indication: Polymyalgia rheumatica
     Dosage: THERAPY END DATE: NASK, UNIT DOSE : 5 MG, FREQUENCY TIME : 1 DAY
     Route: 065
     Dates: start: 20200909

REACTIONS (2)
  - Erectile dysfunction [Recovering/Resolving]
  - Genital hypoaesthesia [Recovering/Resolving]

NARRATIVE: CASE EVENT DATE: 20201211
